FAERS Safety Report 5374749-0 (Version None)
Quarter: 2007Q2

REPORT INFORMATION
  Report Type: 
  Country: None (occurrence: None)
  Receive Date: 20070629
  Receipt Date: 20070626
  Transmission Date: 20071010
  Serious: Yes (Other)
  Sender: FDA-Public Use
  Company Number: GB-RB-007029-07

PATIENT
  Sex: Male
  Weight: 63.9 kg

DRUGS (9)
  1. SUBOXONE [Suspect]
     Route: 060
     Dates: start: 20070430, end: 20070506
  2. SUBOXONE [Suspect]
     Route: 060
     Dates: start: 20070507, end: 20070610
  3. SUBOXONE [Suspect]
     Route: 060
     Dates: start: 20070611
  4. TAMSULOSIN HCL [Concomitant]
     Indication: URINARY RETENTION
     Dates: start: 20070611
  5. PHENERGAN HCL [Concomitant]
     Indication: NAUSEA
     Dosage: 1/2-1 TABLET PRN - 25 MG
     Dates: start: 20070502
  6. KLONOPIN [Concomitant]
     Indication: ANXIETY
  7. KLONOPIN [Concomitant]
     Indication: DEPRESSION
  8. RESTORIL [Concomitant]
  9. METHADONE HCL [Concomitant]
     Dates: end: 20070422

REACTIONS (1)
  - URINARY RETENTION [None]
